FAERS Safety Report 6551705-8 (Version None)
Quarter: 2010Q1

REPORT INFORMATION
  Report Type: 
  Country: None (occurrence: None)
  Receive Date: 20100120
  Receipt Date: 20100107
  Transmission Date: 20100710
  Serious: Yes (Hospitalization)
  Sender: FDA-Public Use
  Company Number: 001#1#2007-00430

PATIENT
  Sex: Male

DRUGS (4)
  1. NEUPRO [Suspect]
     Indication: PARKINSON'S DISEASE
     Dosage: (6 MG/24H; 6MG/24H TRANSDERMAL)
     Route: 062
     Dates: start: 20070601
  2. CABERGOLINE [Concomitant]
  3. NACOM [Concomitant]
  4. FALITHROM [Concomitant]

REACTIONS (19)
  - ABASIA [None]
  - ASPARTATE AMINOTRANSFERASE INCREASED [None]
  - BLOOD BILIRUBIN INCREASED [None]
  - DIZZINESS [None]
  - DYSARTHRIA [None]
  - DYSSTASIA [None]
  - EXCORIATION [None]
  - FALL [None]
  - HAEMATOCRIT DECREASED [None]
  - HAEMOGLOBIN DECREASED [None]
  - HALLUCINATION, VISUAL [None]
  - HYPOTENSION [None]
  - JOINT SWELLING [None]
  - MOBILITY DECREASED [None]
  - PAIN [None]
  - PARKINSON'S DISEASE [None]
  - PSYCHOMOTOR HYPERACTIVITY [None]
  - RENAL CYST [None]
  - RESTLESSNESS [None]
